FAERS Safety Report 10019426 (Version 1)
Quarter: 2014Q1

REPORT INFORMATION
  Report Type: Spontaneous
  Country: GB (occurrence: GB)
  Receive Date: 20140318
  Receipt Date: 20140318
  Transmission Date: 20141002
  Serious: Yes (Life-Threatening, Hospitalization, Disabling, Other)
  Sender: FDA-Public Use
  Company Number: GB-TEVA-468673ISR

PATIENT
  Age: 63 Year
  Sex: Male
  Weight: 80 kg

DRUGS (4)
  1. TRAMADOL [Suspect]
     Indication: PAIN IN EXTREMITY
     Route: 048
     Dates: start: 201310, end: 201310
  2. ORAMORPH [Concomitant]
  3. ANTIEMETICS [Concomitant]
  4. ANTACID [Concomitant]

REACTIONS (9)
  - Dysphonia [Not Recovered/Not Resolved]
  - Aphonia [Not Recovered/Not Resolved]
  - Diarrhoea [Recovered/Resolved with Sequelae]
  - Weight decreased [Not Recovered/Not Resolved]
  - Constipation [Recovered/Resolved]
  - Vomiting [Recovered/Resolved]
  - Dysphagia [Unknown]
  - Throat lesion [Unknown]
  - Choking [Unknown]
